FAERS Safety Report 4771064-0 (Version None)
Quarter: 2005Q3

REPORT INFORMATION
  Report Type: 
  Country: None (occurrence: None)
  Receive Date: 20050915
  Receipt Date: 20050811
  Transmission Date: 20060218
  Serious: Yes (Death, Life-Threatening)
  Sender: FDA-Public Use
  Company Number: JP-SANOFI-SYNTHELABO-A01200505590

PATIENT
  Sex: Male

DRUGS (11)
  1. MILRILA [Suspect]
     Indication: SHOCK
     Dosage: UNK
     Route: 042
     Dates: start: 20050809, end: 20050810
  2. INOVAN [Concomitant]
     Indication: SHOCK
     Dosage: 10 UNIT DOSE
     Route: 042
     Dates: start: 20050805, end: 20050811
  3. INOVAN [Concomitant]
     Indication: CARDIAC FAILURE
     Dosage: 10 UNIT DOSE
     Route: 042
     Dates: start: 20050805, end: 20050811
  4. DOBUTREX [Concomitant]
     Indication: SHOCK
     Dosage: 10 UNIT DOSE
     Route: 042
     Dates: start: 20050805, end: 20050811
  5. DOBUTREX [Concomitant]
     Indication: CARDIAC FAILURE
     Dosage: 10 UNIT DOSE
     Route: 042
     Dates: start: 20050805, end: 20050811
  6. NORADRENALIN [Concomitant]
     Indication: SHOCK
     Dosage: UNK
     Route: 042
     Dates: start: 20050807, end: 20050811
  7. FOY [Concomitant]
     Indication: DISSEMINATED INTRAVASCULAR COAGULATION
     Dosage: 2000 MG
     Route: 042
     Dates: start: 20050805, end: 20050811
  8. DIPRIVAN [Concomitant]
     Indication: DRUG USE FOR UNKNOWN INDICATION
     Dosage: UNK
     Route: 042
     Dates: start: 20050807, end: 20050811
  9. INSULIN [Concomitant]
     Indication: DRUG USE FOR UNKNOWN INDICATION
     Dosage: UNK
     Route: 042
     Dates: start: 20050810, end: 20050811
  10. VASOPRESSIN [Concomitant]
     Indication: SHOCK
     Dosage: UNK
     Route: 065
     Dates: start: 20050810, end: 20050810
  11. LASIX [Concomitant]
     Indication: RENAL FAILURE
     Dosage: 200 MG
     Route: 065
     Dates: start: 20050805, end: 20050811

REACTIONS (10)
  - ANURIA [None]
  - BLOOD PRESSURE DECREASED [None]
  - CARDIAC OUTPUT INCREASED [None]
  - CARDIOMYOPATHY [None]
  - DRUG LEVEL INCREASED [None]
  - HEPATIC CONGESTION [None]
  - MULTI-ORGAN FAILURE [None]
  - PANCREATITIS [None]
  - PNEUMONIA [None]
  - RENAL ISCHAEMIA [None]
